FAERS Safety Report 19961826 (Version 1)
Quarter: 2021Q4

REPORT INFORMATION
  Report Type: Other
  Country: US (occurrence: US)
  Receive Date: 20211018
  Receipt Date: 20211018
  Transmission Date: 20220303
  Serious: No
  Sender: FDA-Public Use
  Company Number: US-NEUROCRINE BIOSCIENCES INC.-2021NBI05794

PATIENT

DRUGS (5)
  1. OPICAPONE [Suspect]
     Active Substance: OPICAPONE
     Indication: Parkinson^s disease
     Dosage: 50 MILLIGRAM EVERY NIGHT AT BEDTIME
     Route: 048
  2. PRAMIPEXOLE DIHYDROCHLORIDE [Concomitant]
     Active Substance: PRAMIPEXOLE DIHYDROCHLORIDE
     Dosage: UNK
  3. CARBIDOPA [Concomitant]
     Active Substance: CARBIDOPA
     Dosage: UNK
  4. LEVODOPA [Concomitant]
     Active Substance: LEVODOPA
     Dosage: UNK
  5. SELEGILINE HYDROCHLORIDE [Concomitant]
     Active Substance: SELEGILINE HYDROCHLORIDE
     Dosage: UNK

REACTIONS (1)
  - Adverse drug reaction [Unknown]
